FAERS Safety Report 14794052 (Version 3)
Quarter: 2018Q2

REPORT INFORMATION
  Report Type: Spontaneous
  Country: US (occurrence: US)
  Receive Date: 20180423
  Receipt Date: 20180518
  Transmission Date: 20180711
  Serious: No
  Sender: FDA-Public Use
  Company Number: US-GLAXOSMITHKLINE-US2018064720

PATIENT
  Age: 38 Year
  Sex: Female

DRUGS (1)
  1. EXCEDRIN EXTRA STRENGTH [Suspect]
     Active Substance: ACETAMINOPHEN\ASPIRIN\CAFFEINE
     Indication: HEADACHE
     Dosage: UNK
     Dates: start: 20180413

REACTIONS (3)
  - Product use in unapproved indication [Unknown]
  - Wrong technique in product usage process [Unknown]
  - Product quality issue [Unknown]

NARRATIVE: CASE EVENT DATE: 20180413
